FAERS Safety Report 4452128-8 (Version None)
Quarter: 2004Q3

REPORT INFORMATION
  Report Type: 
  Country: None (occurrence: None)
  Receive Date: 20040915
  Receipt Date: 20040915
  Transmission Date: 20050211
  Serious: Yes (Hospitalization)
  Sender: FDA-Public Use
  Company Number: None

PATIENT
  Age: 45 Year
  Sex: Female
  Weight: 103.5 kg

DRUGS (6)
  1. GEMCITABINE 1500MG/M2 [Suspect]
     Indication: ADRENOCORTICAL CARCINOMA
     Dosage: 3165 MG
     Dates: start: 20040816
  2. GEMCITABINE 1500MG/M2 [Suspect]
     Indication: METASTASIS
     Dosage: 3165 MG
     Dates: start: 20040816
  3. GEMCITABINE 1500MG/M2 [Suspect]
     Indication: ADRENOCORTICAL CARCINOMA
     Dosage: 3165 MG
     Dates: start: 20040830
  4. GEMCITABINE 1500MG/M2 [Suspect]
     Indication: METASTASIS
     Dosage: 3165 MG
     Dates: start: 20040830
  5. CPT-11 200MG/M2 [Suspect]
     Dosage: 422 MG
     Dates: start: 20040816
  6. CPT-11 200MG/M2 [Suspect]
     Dosage: 422 MG
     Dates: start: 20040830

REACTIONS (9)
  - DYSPNOEA [None]
  - DYSPNOEA EXERTIONAL [None]
  - FATIGUE [None]
  - FLUID OVERLOAD [None]
  - JOINT SWELLING [None]
  - OEDEMA PERIPHERAL [None]
  - PULMONARY EMBOLISM [None]
  - TACHYCARDIA [None]
  - WEIGHT INCREASED [None]
